FAERS Safety Report 5399742-3 (Version None)
Quarter: 2007Q3

REPORT INFORMATION
  Report Type: 
  Country: None (occurrence: None)
  Receive Date: 20070727
  Receipt Date: 20070717
  Transmission Date: 20080115
  Serious: Yes (Hospitalization)
  Sender: FDA-Public Use
  Company Number: FR-PFIZER INC-2007060588

PATIENT
  Sex: Male

DRUGS (8)
  1. ATARAX [Suspect]
     Route: 048
  2. ZAVEDOS POWDER, STERILE [Suspect]
     Indication: NON-HODGKIN'S LYMPHOMA
     Dosage: DAILY DOSE:1.229MG
     Route: 042
     Dates: start: 20070511, end: 20070525
  3. ZAVEDOS POWDER, STERILE [Suspect]
  4. ASPARAGINASE [Suspect]
     Indication: NON-HODGKIN'S LYMPHOMA
     Dosage: DAILY DOSE:12855I.U.
     Route: 030
     Dates: start: 20070521, end: 20070529
  5. VINCRISTINE [Suspect]
     Indication: NON-HODGKIN'S LYMPHOMA
     Dosage: DAILY DOSE:.286MG
     Route: 042
     Dates: start: 20070511, end: 20070525
  6. PREDNISONE [Suspect]
     Indication: NON-HODGKIN'S LYMPHOMA
     Route: 048
     Dates: start: 20070511, end: 20070531
  7. DI-ANTALVIC [Suspect]
     Route: 048
  8. TRAMADOL HCL [Suspect]
     Route: 048

REACTIONS (1)
  - PANCREATITIS ACUTE [None]
